FAERS Safety Report 4704246-4 (Version None)
Quarter: 2005Q2

REPORT INFORMATION
  Report Type: 
  Country: None (occurrence: None)
  Receive Date: 20050630
  Receipt Date: 20050624
  Transmission Date: 20051028
  Serious: Yes (Death)
  Sender: FDA-Public Use
  Company Number: US-JNJFOC-20050203985

PATIENT
  Sex: Male

DRUGS (11)
  1. DURAGESIC-100 [Suspect]
     Route: 062
     Dates: start: 20050201, end: 20050202
  2. TYLENOL [Concomitant]
     Indication: PAIN
  3. TEGRETOL [Concomitant]
     Route: 049
  4. TEGRETOL [Concomitant]
     Indication: TRIGEMINAL NEURALGIA
     Route: 049
  5. LEVOXYL [Concomitant]
     Route: 049
  6. ALTACE [Concomitant]
     Indication: BLOOD PRESSURE
  7. NORVASC [Concomitant]
     Indication: BLOOD PRESSURE
  8. VITAMIN B-12 [Concomitant]
     Route: 050
  9. LEXAPRO [Concomitant]
     Indication: DEPRESSION
     Route: 049
  10. NAMENDA [Concomitant]
     Indication: DEMENTIA
     Route: 049
  11. ARACEPT [Concomitant]
     Indication: DEMENTIA

REACTIONS (12)
  - CLONUS [None]
  - DECUBITUS ULCER [None]
  - DRUG EFFECT DECREASED [None]
  - DYSPHAGIA [None]
  - HEMIPLEGIA [None]
  - MIOSIS [None]
  - MOUTH HAEMORRHAGE [None]
  - OFF LABEL USE [None]
  - OVERDOSE [None]
  - OXYGEN SATURATION DECREASED [None]
  - PNEUMONIA ASPIRATION [None]
  - SOMNOLENCE [None]
